FAERS Safety Report 6209065-8 (Version None)
Quarter: 2009Q2

REPORT INFORMATION
  Report Type: 
  Country: None (occurrence: None)
  Receive Date: 20090529
  Receipt Date: 20090517
  Transmission Date: 20091009
  Serious: Yes (Hospitalization)
  Sender: FDA-Public Use
  Company Number: DE-BIOGENIDEC-2009BI010626

PATIENT
  Age: 43 Year
  Sex: Female
  Weight: 70 kg

DRUGS (5)
  1. TYSABRI [Suspect]
     Indication: RELAPSING-REMITTING MULTIPLE SCLEROSIS
     Route: 042
     Dates: start: 20060822, end: 20090303
  2. SIFROL [Concomitant]
     Indication: RESTLESS LEGS SYNDROME
  3. MADOPAR [Concomitant]
     Indication: RESTLESS LEGS SYNDROME
  4. EUTHYROX [Concomitant]
     Indication: DRUG USE FOR UNKNOWN INDICATION
  5. VIVEO [Concomitant]
     Indication: DRUG USE FOR UNKNOWN INDICATION

REACTIONS (1)
  - PROGRESSIVE MULTIFOCAL LEUKOENCEPHALOPATHY [None]
